FAERS Safety Report 17198307 (Version 2)
Quarter: 2020Q1

REPORT INFORMATION
  Report Type: Report from Study
  Country: US (occurrence: US)
  Receive Date: 20191225
  Receipt Date: 20200127
  Transmission Date: 20200409
  Serious: Yes (Death, Life-Threatening, Hospitalization, Other)
  Sender: FDA-Public Use
  Company Number: US-ASTRAZENECA-2019SF86670

PATIENT
  Age: 27432 Day
  Weight: 34 kg

DRUGS (2)
  1. TAGRISSO [Suspect]
     Active Substance: OSIMERTINIB
     Indication: ADENOCARCINOMA
     Dosage: 80.0MG UNKNOWN
     Route: 048
     Dates: start: 20190913, end: 20191107
  2. TAGRISSO [Suspect]
     Active Substance: OSIMERTINIB
     Indication: ADENOCARCINOMA
     Dosage: 80.0MG UNKNOWN
     Route: 048
     Dates: start: 20190830, end: 20190904

REACTIONS (7)
  - Pulse absent [Unknown]
  - Acute kidney injury [Fatal]
  - Cutaneous vasculitis [Unknown]
  - Acute respiratory failure [Fatal]
  - Wound [Unknown]
  - Hyperkalaemia [Recovered/Resolved]
  - Mental status changes [Fatal]

NARRATIVE: CASE EVENT DATE: 20191107
